FAERS Safety Report 14067328 (Version 2)
Quarter: 2018Q2

REPORT INFORMATION
  Report Type: Report from Study
  Country: ZA (occurrence: ZA)
  Receive Date: 20171009
  Receipt Date: 20180419
  Transmission Date: 20180711
  Serious: Yes (Hospitalization)
  Sender: FDA-Public Use
  Company Number: PHHY2017ZA099784

PATIENT
  Age: 44 Year
  Sex: Female

DRUGS (1)
  1. GILENYA [Suspect]
     Active Substance: FINGOLIMOD HYDROCHLORIDE
     Indication: RELAPSING-REMITTING MULTIPLE SCLEROSIS
     Dosage: 0.5 MG, QD
     Route: 048
     Dates: start: 201705

REACTIONS (9)
  - Multiple sclerosis relapse [Recovered/Resolved]
  - Mouth ulceration [Unknown]
  - Headache [Unknown]
  - Dry mouth [Unknown]
  - Aphasia [Unknown]
  - Nephrolithiasis [Recovering/Resolving]
  - Arthralgia [Unknown]
  - Alopecia [Unknown]
  - Cystitis [Unknown]

NARRATIVE: CASE EVENT DATE: 20170626
